FAERS Safety Report 5926714-X (Version None)
Quarter: 2008Q4

REPORT INFORMATION
  Report Type: 
  Country: None (occurrence: None)
  Receive Date: 20081017
  Receipt Date: 20081001
  Transmission Date: 20090506
  Serious: Yes (Death, Hospitalization)
  Sender: FDA-Public Use
  Company Number: DSA_32502_2008

PATIENT
  Age: 85 Year
  Sex: Female

DRUGS (11)
  1. ENALAPRIL MALEATE [Suspect]
     Indication: HYPERTENSION
     Dosage: DF ORAL
     Route: 048
     Dates: end: 20080602
  2. DIGOXIN [Suspect]
     Indication: DRUG USE FOR UNKNOWN INDICATION
     Dosage: DF ORAL
     Route: 048
     Dates: end: 20080602
  3. FUROSEMIDE [Suspect]
     Indication: HYPERTENSION
     Dosage: DF ORAL
     Route: 048
     Dates: end: 20080602
  4. CIPROFLOXACIN HYDROCHLORIDE [Concomitant]
  5. CLARITHROMYCIN [Concomitant]
  6. ESOMEPRAZOLE MAGNESIUM [Concomitant]
  7. CEFTRIAXONE [Concomitant]
  8. ACARBOSE [Concomitant]
  9. BENSERAZIDE HYDROCHLORIDE W/LEVODOPA [Concomitant]
  10. BROMOCRIPTINE MESYLATE [Concomitant]
  11. GLICLAZIDE [Concomitant]

REACTIONS (6)
  - ANAEMIA [None]
  - DEHYDRATION [None]
  - LUNG DISORDER [None]
  - PLEURAL INFECTION [None]
  - RENAL FAILURE ACUTE [None]
  - THERAPEUTIC AGENT TOXICITY [None]
